FAERS Safety Report 23588758 (Version 1)
Quarter: 2024Q1

REPORT INFORMATION
  Report Type: Spontaneous
  Country: GB (occurrence: GB)
  Receive Date: 20240303
  Receipt Date: 20240303
  Transmission Date: 20240410
  Serious: Yes (Life-Threatening, Disabling, Other)
  Sender: FDA-Public Use
  Company Number: None

PATIENT
  Age: 63 Year
  Sex: Male
  Weight: 80 kg

DRUGS (1)
  1. ESCITALOPRAM [Suspect]
     Active Substance: ESCITALOPRAM OXALATE
     Indication: Anxiety
     Dosage: 5 MG ONCE A DAY IN THE MORNING; ;
     Route: 065
     Dates: start: 20240103

REACTIONS (5)
  - Sleep terror [Not Recovered/Not Resolved]
  - Abnormal dreams [Unknown]
  - Intentional self-injury [Unknown]
  - Anxiety [Unknown]
  - Mental disorder [Unknown]

NARRATIVE: CASE EVENT DATE: 20240220
